FAERS Safety Report 10356812 (Version 1)
Quarter: 2014Q3

REPORT INFORMATION
  Report Type: Spontaneous
  Country: US (occurrence: None)
  Receive Date: 20140730
  Receipt Date: 20140730
  Transmission Date: 20150326
  Serious: No
  Sender: FDA-Public Use
  Company Number: None

PATIENT
  Age: 75 Year
  Sex: Male
  Weight: 103.42 kg

DRUGS (30)
  1. TYLENOL [Concomitant]
     Active Substance: ACETAMINOPHEN
  2. COENZYME Q10 [Concomitant]
     Active Substance: UBIDECARENONE
  3. MILK OF MAG [Concomitant]
  4. VIT B COMPLEX W/ B12 [Concomitant]
  5. BACTRIM DS [Concomitant]
     Active Substance: SULFAMETHOXAZOLE\TRIMETHOPRIM
  6. CIPRO [Concomitant]
     Active Substance: CIPROFLOXACIN HYDROCHLORIDE
  7. FUROSEMIDE. [Concomitant]
     Active Substance: FUROSEMIDE
  8. ZOSYN [Suspect]
     Active Substance: PIPERACILLIN SODIUM\TAZOBACTAM SODIUM
     Indication: CATHETER SITE INFECTION
     Route: 042
     Dates: start: 20140716, end: 20140719
  9. CARVEDILOL. [Concomitant]
     Active Substance: CARVEDILOL
  10. PNU-IMMUNE VACCINE [Concomitant]
  11. DAPAGLIFLOZIN [Concomitant]
     Active Substance: DAPAGLIFLOZIN
  12. ALUMINUM/MAGNISIUM/SIMETHCONE [Concomitant]
  13. DONEPEZIL [Concomitant]
     Active Substance: DONEPEZIL
  14. ZOFRAN [Concomitant]
     Active Substance: ONDANSETRON HYDROCHLORIDE
  15. JANUVIA [Concomitant]
     Active Substance: SITAGLIPTIN PHOSPHATE
  16. VANCOMYCIN [Suspect]
     Active Substance: VANCOMYCIN
     Indication: CATHETER SITE INFECTION
     Route: 042
     Dates: start: 20140716, end: 20140720
  17. AMLODIPINE [Concomitant]
     Active Substance: AMLODIPINE BESYLATE
  18. LABETALOL [Concomitant]
     Active Substance: LABETALOL\LABETALOL HYDROCHLORIDE
  19. LANTUS [Concomitant]
     Active Substance: INSULIN GLARGINE
  20. OMEGA 3 [Concomitant]
     Active Substance: OMEGA-3 FATTY ACIDS
  21. POTASSIUM CLORIDE [Concomitant]
  22. CLONIDINE. [Concomitant]
     Active Substance: CLONIDINE
  23. DEXTROSE SYRINGE [Concomitant]
  24. GABAPENTIN. [Concomitant]
     Active Substance: GABAPENTIN
  25. NORCO [Concomitant]
     Active Substance: ACETAMINOPHEN\HYDROCODONE BITARTRATE
  26. NOVOLIN [Concomitant]
     Active Substance: INSULIN HUMAN
  27. MULTI VIT [Concomitant]
  28. ATORVASTATIN [Concomitant]
     Active Substance: ATORVASTATIN
  29. HYDRALAZINE [Concomitant]
     Active Substance: HYDRALAZINE HYDROCHLORIDE
  30. LOSARTAN [Concomitant]
     Active Substance: LOSARTAN

REACTIONS (3)
  - Renal impairment [None]
  - Blood creatinine increased [None]
  - Dialysis [None]

NARRATIVE: CASE EVENT DATE: 20140722
